FAERS Safety Report 4996917-X (Version None)
Quarter: 2006Q2

REPORT INFORMATION
  Report Type: 
  Country: None (occurrence: None)
  Receive Date: 20060509
  Receipt Date: 20060426
  Transmission Date: 20061013
  Serious: Yes (Life-Threatening, Disabling, Other)
  Sender: FDA-Public Use
  Company Number: GB-GLAXOSMITHKLINE-B0421379A

PATIENT
  Age: 50 Year
  Sex: Male

DRUGS (3)
  1. PAROXETINE [Suspect]
     Route: 048
     Dates: start: 20040806
  2. ALCOHOL [Suspect]
     Route: 048
     Dates: start: 20050216
  3. DIAZEPAM [Concomitant]
     Dosage: 2MG PER DAY
     Route: 048
     Dates: start: 20040206

REACTIONS (4)
  - ABNORMAL BEHAVIOUR [None]
  - AGGRESSION [None]
  - ALCOHOL INTERACTION [None]
  - AMNESIA [None]
